FAERS Safety Report 8079923-0 (Version None)
Quarter: 2012Q1

REPORT INFORMATION
  Report Type: 
  Country: None (occurrence: None)
  Receive Date: 20120128
  Receipt Date: 20110722
  Transmission Date: 20120608
  Serious: No
  Sender: FDA-Public Use
  Company Number: US-ABBOTT-11P-163-0841196-00

PATIENT
  Age: 44 Year
  Sex: Male

DRUGS (7)
  1. HUMIRA [Suspect]
     Indication: CROHN'S DISEASE
     Dosage: INTERRUPTED
     Dates: start: 20101001, end: 20101201
  2. TESTOSTERONE [Concomitant]
     Indication: BLOOD TESTOSTERONE DECREASED
     Dosage: EVERY 3 WEEKS
     Route: 050
  3. CYMBALTA [Concomitant]
     Indication: DEPRESSION
     Dosage: 60 MG DAILY
     Dates: start: 20080101
  4. IMURAN [Concomitant]
     Indication: CROHN'S DISEASE
     Dosage: 150 MG DAILY
  5. WELLBUTRIN [Concomitant]
     Indication: DEPRESSION
     Dosage: 300 MG DAILY
     Dates: start: 20030101
  6. CYMBALTA [Concomitant]
     Indication: CROHN'S DISEASE
  7. WELLBUTRIN [Concomitant]
     Indication: EX-TOBACCO USER

REACTIONS (3)
  - INFLUENZA [None]
  - MALAISE [None]
  - NASOPHARYNGITIS [None]
